FAERS Safety Report 4262298-2 (Version None)
Quarter: 2004Q1

REPORT INFORMATION
  Report Type: 
  Country: None (occurrence: None)
  Receive Date: 20040102
  Receipt Date: 20031210
  Transmission Date: 20041129
  Serious: Yes (Hospitalization, Disabling)
  Sender: FDA-Public Use
  Company Number: PHHO2003MY15935

PATIENT
  Age: 41 Year
  Sex: Female
  Weight: 70 kg

DRUGS (1)
  1. GLEEVEC [Suspect]
     Indication: CHRONIC MYELOID LEUKAEMIA
     Dosage: 200 MG, BID
     Route: 048
     Dates: start: 20030806, end: 20031209

REACTIONS (5)
  - CENTRAL NERVOUS SYSTEM MASS [None]
  - PARAPLEGIA [None]
  - SENSORY LOSS [None]
  - SPINAL CORD COMPRESSION [None]
  - SPINAL HAEMATOMA [None]
